FAERS Safety Report 17687078 (Version 1)
Quarter: 2020Q2

REPORT INFORMATION
  Report Type: Spontaneous
  Country: US (occurrence: US)
  Receive Date: 20200421
  Receipt Date: 20200421
  Transmission Date: 20200714
  Serious: No
  Sender: FDA-Public Use
  Company Number: US-LEADINGPHARMA-US-2020LEASPO00057

PATIENT
  Sex: Male

DRUGS (1)
  1. LORAZEPAM TABLETS USP [Suspect]
     Active Substance: LORAZEPAM
     Indication: ANXIETY
     Route: 048
     Dates: start: 20200409, end: 20200409

REACTIONS (2)
  - Somnolence [Unknown]
  - Sedation [Unknown]

NARRATIVE: CASE EVENT DATE: 20200409
